FAERS Safety Report 11693769 (Version 2)
Quarter: 2016Q1

REPORT INFORMATION
  Report Type: Report from Study
  Country: BR (occurrence: BR)
  Receive Date: 20151103
  Receipt Date: 20160205
  Transmission Date: 20160525
  Serious: Yes (Other)
  Sender: FDA-Public Use
  Company Number: BR-ABBVIE-15K-020-1491864-00

PATIENT
  Age: 53 Year
  Sex: Female
  Weight: 87 kg

DRUGS (4)
  1. CLONAZEPAM. [Concomitant]
     Active Substance: CLONAZEPAM
     Indication: SLEEP DISORDER THERAPY
     Route: 048
     Dates: start: 2009
  2. METHOTREXATE [Suspect]
     Active Substance: METHOTREXATE
     Indication: PRODUCT USED FOR UNKNOWN INDICATION
     Route: 065
     Dates: start: 201505
  3. VELIJA [Concomitant]
     Active Substance: DULOXETINE HYDROCHLORIDE
     Indication: DEPRESSION
     Route: 048
     Dates: start: 2011
  4. HUMIRA [Suspect]
     Active Substance: ADALIMUMAB
     Indication: PSORIASIS
     Route: 058
     Dates: start: 20120921

REACTIONS (29)
  - Shoulder operation [Unknown]
  - Memory impairment [Unknown]
  - Cerebral disorder [Not Recovered/Not Resolved]
  - Blood cholesterol abnormal [Recovering/Resolving]
  - Psoriasis [Recovering/Resolving]
  - Feeling hot [Recovered/Resolved]
  - Blood cholesterol abnormal [Not Recovered/Not Resolved]
  - Cerebral disorder [Unknown]
  - Confusional state [Recovered/Resolved]
  - Cerebral ischaemia [Not Recovered/Not Resolved]
  - Psoriasis [Recovered/Resolved]
  - Head injury [Unknown]
  - Psoriatic arthropathy [Unknown]
  - Gastrointestinal disorder [Recovered/Resolved]
  - Hypertension [Recovering/Resolving]
  - Psoriasis [Recovered/Resolved]
  - Limb injury [Unknown]
  - Dizziness [Recovered/Resolved]
  - Hyperhidrosis [Recovered/Resolved]
  - CSF test abnormal [Unknown]
  - Mouth injury [Unknown]
  - Muscle injury [Unknown]
  - Insomnia [Recovered/Resolved]
  - Weight increased [Not Recovered/Not Resolved]
  - Anxiety [Unknown]
  - Shoulder operation [Unknown]
  - Emotional disorder [Unknown]
  - Hypertension [Not Recovered/Not Resolved]
  - Drug effect incomplete [Not Recovered/Not Resolved]

NARRATIVE: CASE EVENT DATE: 2012
